FAERS Safety Report 9422683 (Version 1)
Quarter: 2013Q3

REPORT INFORMATION
  Report Type: Spontaneous
  Country: US (occurrence: None)
  Receive Date: 20130724
  Receipt Date: 20130724
  Transmission Date: 20140515
  Serious: Yes (Hospitalization)
  Sender: FDA-Public Use
  Company Number: 13AE012

PATIENT
  Sex: Female

DRUGS (2)
  1. ACETAMINOPHEN [Suspect]
     Indication: PAIN
     Route: 048
  2. ACETAMINOPHEN [Suspect]
     Indication: PYREXIA
     Route: 048

REACTIONS (4)
  - Abdominal pain upper [None]
  - Wrong drug administered [None]
  - Incorrect dose administered [None]
  - Product commingling [None]
